FAERS Safety Report 4911111-6 (Version None)
Quarter: 2006Q1

REPORT INFORMATION
  Report Type: 
  Country: None (occurrence: None)
  Receive Date: 20060209
  Receipt Date: 20060127
  Transmission Date: 20060701
  Serious: Yes (Hospitalization)
  Sender: FDA-Public Use
  Company Number: 2006015285

PATIENT
  Age: 48 Year
  Sex: Female

DRUGS (1)
  1. CLINDAMYCIN PHOSPHATE [Suspect]
     Indication: ILL-DEFINED DISORDER
     Dosage: 2.4 GRAM, INTRAVENOUS
     Route: 042
     Dates: start: 20051216, end: 20051223

REACTIONS (2)
  - ANAEMIA [None]
  - THROMBOCYTOPENIA [None]
